FAERS Safety Report 13215215 (Version 1)
Quarter: 2017Q1

REPORT INFORMATION
  Report Type: Spontaneous
  Country: US (occurrence: US)
  Receive Date: 20170209
  Receipt Date: 20170209
  Transmission Date: 20170428
  Serious: No
  Sender: FDA-Public Use
  Company Number: US-ALLERGAN-1677526US

PATIENT
  Age: 51 Year
  Sex: Female

DRUGS (4)
  1. BOTOX COSMETIC [Suspect]
     Active Substance: ONABOTULINUMTOXINA
     Indication: SKIN WRINKLING
  2. BOTOX COSMETIC [Suspect]
     Active Substance: ONABOTULINUMTOXINA
     Indication: SKIN WRINKLING
     Dosage: 36 UNITS, SINGLE
     Route: 030
     Dates: start: 20161116, end: 20161116
  3. JUVEDERM ULTRA XC PLUS [Concomitant]
     Dosage: 2 SYRINGES
     Dates: start: 20161116, end: 20161116
  4. BOTOX COSMETIC [Suspect]
     Active Substance: ONABOTULINUMTOXINA
     Indication: SKIN WRINKLING
     Dosage: UNK, SINGLE
     Route: 030
     Dates: start: 201611, end: 201611

REACTIONS (13)
  - Blister [Recovered/Resolved]
  - Scab [Recovered/Resolved]
  - Dry skin [Recovered/Resolved]
  - Feeling abnormal [Recovered/Resolved]
  - Skin exfoliation [Recovered/Resolved]
  - Erythema [Recovered/Resolved]
  - Facial pain [Recovered/Resolved]
  - Contusion [Recovered/Resolved]
  - Nodule [Recovered/Resolved]
  - Sneezing [Recovered/Resolved]
  - Nasal discomfort [Recovered/Resolved]
  - Incorrect product storage [Unknown]
  - Hypoaesthesia [Recovered/Resolved]

NARRATIVE: CASE EVENT DATE: 201611
